FAERS Safety Report 7905893-9 (Version None)
Quarter: 2011Q4

REPORT INFORMATION
  Report Type: 
  Country: None (occurrence: None)
  Receive Date: 20111110
  Receipt Date: 20111108
  Transmission Date: 20120403
  Serious: No
  Sender: FDA-Public Use
  Company Number: US-PFIZER INC-2011273667

PATIENT
  Sex: Female
  Weight: 48.1 kg

DRUGS (4)
  1. LYRICA [Suspect]
     Indication: FIBROMYALGIA
     Dosage: 75 MG, 1X/DAY
     Route: 048
     Dates: start: 20100401
  2. MESALAMINE [Concomitant]
     Indication: CROHN'S DISEASE
     Dosage: UNK
  3. MORPHINE [Concomitant]
     Indication: PAIN
     Dosage: UNK
  4. BONIVA [Concomitant]
     Indication: OSTEOPOROSIS
     Dosage: UNK

REACTIONS (1)
  - VISION BLURRED [None]
